FAERS Safety Report 13438332 (Version 6)
Quarter: 2018Q1

REPORT INFORMATION
  Report Type: Spontaneous
  Country: RU (occurrence: RU)
  Receive Date: 20170413
  Receipt Date: 20180129
  Transmission Date: 20180508
  Serious: Yes (Hospitalization, Congenital Anomaly, Other)
  Sender: FDA-Public Use
  Company Number: RU-ALEXION-A201703548

PATIENT
  Age: 0 Day
  Sex: Male
  Weight: 1.7 kg

DRUGS (1)
  1. SOLIRIS [Suspect]
     Active Substance: ECULIZUMAB
     Indication: PRODUCT USED FOR UNKNOWN INDICATION
     Dosage: UNK
     Route: 064

REACTIONS (18)
  - Hypotonia [Recovered/Resolved]
  - Premature baby [Unknown]
  - Cardiac disorder [Not Recovered/Not Resolved]
  - Atrial septal defect [Not Recovered/Not Resolved]
  - Hypertension [Recovered/Resolved]
  - Congenital ureterocele [Unknown]
  - Renal dysplasia [Not Recovered/Not Resolved]
  - Pneumonia [Recovered/Resolved]
  - Foetal exposure during pregnancy [Recovered/Resolved]
  - Congenital hydronephrosis [Not Recovered/Not Resolved]
  - Congenital ureteric anomaly [Unknown]
  - Respiratory failure [Recovered/Resolved]
  - Hyperviscosity syndrome [Unknown]
  - Atelectasis [Unknown]
  - Kidney duplex [Not Recovered/Not Resolved]
  - Cerebral ischaemia [Recovered/Resolved]
  - General symptom [Recovered/Resolved]
  - Left ventricular false tendon [Not Recovered/Not Resolved]

NARRATIVE: CASE EVENT DATE: 20170203
